FAERS Safety Report 18089352 (Version 4)
Quarter: 2025Q4

REPORT INFORMATION
  Report Type: Spontaneous
  Country: EU (occurrence: EU)
  Receive Date: 20200730
  Receipt Date: 20251009
  Transmission Date: 20260118
  Serious: Yes (Death, Other)
  Sender: RANBAXY
  Company Number: EU-SUN PHARMACEUTICAL INDUSTRIES LTD-2020R1-255048

PATIENT
  Age: 64 Year
  Sex: Female

DRUGS (12)
  1. CARMUSTINE [Suspect]
     Active Substance: CARMUSTINE
     Indication: Immunosuppressant drug therapy
     Dosage: ()
     Route: 046
  2. MEFLOQUINE [Suspect]
     Active Substance: MEFLOQUINE
     Indication: Progressive multifocal leukoencephalopathy
     Dosage: UNK
     Route: 065
     Dates: start: 201707
  3. MIRTAZAPINE [Suspect]
     Active Substance: MIRTAZAPINE
     Indication: Progressive multifocal leukoencephalopathy
     Dosage: UNK
     Route: 065
     Dates: start: 201707
  4. MELPHALAN [Suspect]
     Active Substance: MELPHALAN
     Indication: Immunosuppressant drug therapy
     Dosage: ()
     Route: 046
  5. BENDAMUSTINE [Suspect]
     Active Substance: BENDAMUSTINE
     Indication: Chronic lymphocytic leukaemia
     Dosage: 70 MILLIGRAM/SQ. METER
     Route: 046
  6. CYTARABINE [Suspect]
     Active Substance: CYTARABINE
     Indication: Immunosuppressant drug therapy
     Dosage: UNK
     Route: 046
  7. CYCLOPHOSPHAMIDE [Suspect]
     Active Substance: CYCLOPHOSPHAMIDE
     Indication: Chronic lymphocytic leukaemia
     Dosage: 250 MILLIGRAM/SQ. METER
     Route: 046
  8. ETOPOSIDE [Suspect]
     Active Substance: ETOPOSIDE
     Indication: Immunosuppressant drug therapy
     Dosage: UNK
     Route: 046
  9. FLUDARABINE [Suspect]
     Active Substance: FLUDARABINE PHOSPHATE
     Indication: Chronic lymphocytic leukaemia
     Dosage: 25 MILLIGRAM/SQ. METER
     Route: 046
  10. IDELALISIB [Suspect]
     Active Substance: IDELALISIB
     Indication: Chronic lymphocytic leukaemia
     Dosage: 300 MILLIGRAM DAILY; AS MONOTHERAPY
     Route: 048
     Dates: start: 201510
  11. OFATUMUMAB [Suspect]
     Active Substance: OFATUMUMAB
     Indication: Chronic lymphocytic leukaemia
     Route: 046
  12. RITUXIMAB [Suspect]
     Active Substance: RITUXIMAB
     Indication: Chronic lymphocytic leukaemia
     Dosage: RECEIVED 5 COURSES OUT OF 8
     Route: 046
     Dates: start: 201510, end: 201512

REACTIONS (14)
  - Progressive multifocal leukoencephalopathy [Fatal]
  - Status epilepticus [Fatal]
  - Epilepsia partialis continua [Unknown]
  - Condition aggravated [Unknown]
  - Immune reconstitution inflammatory syndrome [Unknown]
  - Hemianopia [Not Recovered/Not Resolved]
  - Anosognosia [Unknown]
  - Muscular weakness [Unknown]
  - Colitis [Recovered/Resolved]
  - Rash [Unknown]
  - Ataxia [Unknown]
  - Toxicity to various agents [Unknown]
  - Disease progression [Unknown]
  - JC virus infection [Unknown]
